FAERS Safety Report 8373197-9 (Version None)
Quarter: 2012Q2

REPORT INFORMATION
  Report Type: 
  Country: None (occurrence: None)
  Receive Date: 20120521
  Receipt Date: 20120515
  Transmission Date: 20120825
  Serious: Yes (Other)
  Sender: FDA-Public Use
  Company Number: US-PFIZER INC-2012106686

PATIENT
  Sex: Female

DRUGS (1)
  1. NEURONTIN [Suspect]
     Dosage: UNK

REACTIONS (14)
  - DIARRHOEA [None]
  - VOMITING [None]
  - HEADACHE [None]
  - CONSTIPATION [None]
  - THINKING ABNORMAL [None]
  - ANGER [None]
  - DIZZINESS [None]
  - DRY MOUTH [None]
  - BIPOLAR DISORDER [None]
  - OEDEMA PERIPHERAL [None]
  - NAUSEA [None]
  - INFECTION [None]
  - MIGRAINE [None]
  - SOMNOLENCE [None]
